FAERS Safety Report 7405662-2 (Version None)
Quarter: 2011Q2

REPORT INFORMATION
  Report Type: 
  Country: None (occurrence: None)
  Receive Date: 20110411
  Receipt Date: 20110401
  Transmission Date: 20111010
  Serious: Yes (Other)
  Sender: FDA-Public Use
  Company Number: PHHY2011CN27401

PATIENT
  Sex: Male

DRUGS (1)
  1. SANDOSTATIN LAR [Suspect]
     Indication: GASTRIC ULCER HAEMORRHAGE
     Dosage: 20 MG (FREQUENCY UNSPECIFIED)
     Dates: start: 20110330, end: 20110331

REACTIONS (3)
  - OVERDOSE [None]
  - ANGIOPATHY [None]
  - INTENTIONAL DRUG MISUSE [None]
